FAERS Safety Report 25730472 (Version 1)
Quarter: 2025Q3

REPORT INFORMATION
  Report Type: Spontaneous
  Country: US (occurrence: None)
  Receive Date: 20250826
  Receipt Date: 20250826
  Transmission Date: 20251021
  Serious: Yes (Other)
  Sender: FDA-CTU
  Company Number: None

PATIENT
  Age: 59 Year
  Sex: Male
  Weight: 106.59 kg

DRUGS (9)
  1. HYDROCHLOROTHIAZIDE [Suspect]
     Active Substance: HYDROCHLOROTHIAZIDE
     Indication: Hypertension
     Dosage: FREQUENCY : DAILY;?
     Route: 048
     Dates: start: 20250819, end: 20250819
  2. VERAPAMIL [Concomitant]
     Active Substance: VERAPAMIL HYDROCHLORIDE
  3. IRBESARTAN [Concomitant]
     Active Substance: IRBESARTAN
  4. CELECOXIB [Concomitant]
     Active Substance: CELECOXIB
  5. LEVOTHYROXINE [Concomitant]
     Active Substance: LEVOTHYROXINE
  6. ATORVASTATIN [Concomitant]
     Active Substance: ATORVASTATIN
  7. Ergotamine-Caffeine [Concomitant]
  8. VITAMIN D2 [Concomitant]
     Active Substance: ERGOCALCIFEROL
  9. FAMOTIDINE [Concomitant]
     Active Substance: FAMOTIDINE

REACTIONS (6)
  - Headache [None]
  - Dry mouth [None]
  - Eye pain [None]
  - Muscle spasms [None]
  - Muscle spasms [None]
  - Chest pain [None]

NARRATIVE: CASE EVENT DATE: 20250809
